FAERS Safety Report 7534208-3 (Version None)
Quarter: 2011Q2

REPORT INFORMATION
  Report Type: 
  Country: None (occurrence: None)
  Receive Date: 20110608
  Receipt Date: 20061116
  Transmission Date: 20111010
  Serious: Yes (Hospitalization, Other)
  Sender: FDA-Public Use
  Company Number: PHMT2006CA01865

PATIENT
  Sex: Male

DRUGS (1)
  1. CLOZAPINE [Suspect]
     Route: 048
     Dates: start: 19990518

REACTIONS (3)
  - SEPTIC SHOCK [None]
  - APPENDICITIS PERFORATED [None]
  - LOSS OF CONSCIOUSNESS [None]
